FAERS Safety Report 18197281 (Version 4)
Quarter: 2022Q3

REPORT INFORMATION
  Report Type: Spontaneous
  Country: US (occurrence: US)
  Receive Date: 20200826
  Receipt Date: 20220930
  Transmission Date: 20221027
  Serious: Yes (Other)
  Sender: FDA-Public Use
  Company Number: US-SAARTEMIS-SAC202008200362

PATIENT
  Age: 60 Year
  Sex: Male

DRUGS (1)
  1. ZANTAC [Suspect]
     Active Substance: RANITIDINE HYDROCHLORIDE
     Indication: Dyspepsia
     Dosage: 150 MG, OTHER
     Dates: start: 201401, end: 201912

REACTIONS (2)
  - Colorectal cancer stage II [Not Recovered/Not Resolved]
  - Hepatic cancer stage III [Not Recovered/Not Resolved]

NARRATIVE: CASE EVENT DATE: 20191206
